FAERS Safety Report 18469029 (Version 1)
Quarter: 2020Q4

REPORT INFORMATION
  Report Type: Spontaneous
  Country: US (occurrence: US)
  Receive Date: 20201105
  Receipt Date: 20201105
  Transmission Date: 20210114
  Serious: Yes (Death)
  Sender: FDA-Public Use
  Company Number: None

PATIENT
  Age: 23 Year
  Sex: Female
  Weight: 67.4 kg

DRUGS (2)
  1. MIFEPREX [Suspect]
     Active Substance: MIFEPRISTONE
     Indication: ABORTION INDUCED
     Dates: start: 20170201, end: 20170202
  2. MISOPROSTOL. [Suspect]
     Active Substance: MISOPROSTOL
     Dates: start: 20170201, end: 20170203

REACTIONS (5)
  - Obstetrical pulmonary embolism [None]
  - Disseminated intravascular coagulation [None]
  - Sepsis [None]
  - Exposure during pregnancy [None]
  - Off label use [None]

NARRATIVE: CASE EVENT DATE: 20170201
